FAERS Safety Report 26158687 (Version 1)
Quarter: 2025Q4

REPORT INFORMATION
  Report Type: Report from Study
  Country: AR (occurrence: AR)
  Receive Date: 20251215
  Receipt Date: 20251215
  Transmission Date: 20260117
  Serious: Yes (Other)
  Sender: MERCK KGAA
  Company Number: AR-Merck Healthcare KGaA-2025035690

PATIENT
  Sex: Male

DRUGS (1)
  1. SAIZEN [Suspect]
     Active Substance: SOMATROPIN
     Indication: Growth hormone deficiency
     Dates: start: 20231018, end: 202506

REACTIONS (2)
  - Prolactin-producing pituitary tumour [Unknown]
  - Pineal gland cyst [Unknown]
